APPROVED DRUG PRODUCT: MULTIPLE ELECTROLYTES INJECTION TYPE 1 USP PH 5.5
Active Ingredient: MAGNESIUM CHLORIDE; POTASSIUM CHLORIDE; SODIUM ACETATE; SODIUM CHLORIDE; SODIUM GLUCONATE
Strength: 30MG/100ML;37MG/100ML;368MG/100ML;526MG/100ML;502MG/100ML
Dosage Form/Route: INJECTABLE;INJECTION
Application: A215370 | Product #001
Applicant: FRESENIUS KABI USA LLC
Approved: Jun 29, 2022 | RLD: No | RS: No | Type: DISCN